FAERS Safety Report 23499008 (Version 1)
Quarter: 2024Q1

REPORT INFORMATION
  Report Type: Spontaneous
  Country: IT (occurrence: IT)
  Receive Date: 20240208
  Receipt Date: 20240208
  Transmission Date: 20240410
  Serious: Yes (Other)
  Sender: FDA-Public Use
  Company Number: IT-AMGEN-ITASP2024003746

PATIENT
  Sex: Male

DRUGS (1)
  1. NPLATE [Suspect]
     Active Substance: ROMIPLOSTIM
     Indication: Product used for unknown indication
     Dosage: UNK
     Route: 065

REACTIONS (4)
  - Product contamination microbial [Unknown]
  - Product storage error [Unknown]
  - Circumstance or information capable of leading to medication error [Unknown]
  - Therapy interrupted [Unknown]
